FAERS Safety Report 21978374 (Version 1)
Quarter: 2023Q1

REPORT INFORMATION
  Report Type: Spontaneous
  Country: US (occurrence: None)
  Receive Date: 20230209
  Receipt Date: 20230209
  Transmission Date: 20230418
  Serious: Yes (Death)
  Sender: FDA-Public Use
  Company Number: None

PATIENT
  Age: 78 Year
  Sex: Male
  Weight: 82.3 kg

DRUGS (1)
  1. CEFEPIME [Suspect]
     Active Substance: CEFEPIME HYDROCHLORIDE
     Indication: Pneumonia
     Dosage: FREQUENCY : TWICE A DAY;?
     Route: 042
     Dates: start: 20220720, end: 20220724

REACTIONS (8)
  - Neurotoxicity [None]
  - Blood creatine increased [None]
  - Tremor [None]
  - Encephalopathy [None]
  - Status epilepticus [None]
  - Hypervolaemia [None]
  - Respiratory failure [None]
  - Cardiac arrest [None]

NARRATIVE: CASE EVENT DATE: 20220724
